FAERS Safety Report 7827873-4 (Version None)
Quarter: 2011Q4

REPORT INFORMATION
  Report Type: 
  Country: None (occurrence: None)
  Receive Date: 20111020
  Receipt Date: 20111006
  Transmission Date: 20120403
  Serious: Yes (Hospitalization)
  Sender: FDA-Public Use
  Company Number: US-BAYER-2010-001682

PATIENT
  Age: 40 Year
  Sex: Female
  Weight: 58.957 kg

DRUGS (15)
  1. WELLBUTRIN XL [Concomitant]
     Dosage: 150 MG, QD
     Route: 048
  2. TALACEN [Concomitant]
     Dosage: UNK
     Dates: start: 20000101
  3. KEFLEX [Concomitant]
     Dosage: 500 MG, TID
     Route: 048
  4. ANTITHROMBOTIC AGENTS [Concomitant]
     Indication: ANTICOAGULANT THERAPY
  5. ANTIMIGRAINE PREPARATIONS [Concomitant]
     Indication: MIGRAINE
  6. FIORICET [Concomitant]
     Indication: HEADACHE
     Dosage: UNK UNK, PRN
  7. ASPIRIN [Concomitant]
     Dosage: 81 MG, QD
     Route: 048
  8. TORADOL [Concomitant]
     Dosage: 15 MG, UNK
  9. YASMIN [Suspect]
  10. YAZ [Suspect]
  11. YASMIN [Suspect]
     Indication: PREMENSTRUAL SYNDROME
     Dosage: UNK
     Dates: start: 20070101, end: 20100101
  12. YAZ [Suspect]
     Indication: PREMENSTRUAL SYNDROME
     Dosage: UNK
     Dates: start: 20070101, end: 20100101
  13. LEXAPRO [Concomitant]
     Dosage: 20 MG, QD
     Route: 048
  14. MULTIVITAMINS AND IRON [Concomitant]
     Dosage: UNK UNK, QD
     Route: 048
  15. COMBIVENT [Concomitant]

REACTIONS (2)
  - DEPRESSION [None]
  - PULMONARY EMBOLISM [None]
